FAERS Safety Report 16173526 (Version 1)
Quarter: 2019Q2

REPORT INFORMATION
  Report Type: Spontaneous
  Country: US (occurrence: US)
  Receive Date: 20190408
  Receipt Date: 20190408
  Transmission Date: 20190711
  Serious: Yes (Other)
  Sender: FDA-Public Use
  Company Number: None

PATIENT
  Age: 81 Year
  Sex: Male
  Weight: 70.16 kg

DRUGS (10)
  1. ATORVASTATIN [Concomitant]
     Active Substance: ATORVASTATIN
  2. VITAMIN C [Concomitant]
     Active Substance: ASCORBIC ACID
  3. TYLENOL [Concomitant]
     Active Substance: ACETAMINOPHEN
  4. DULOXETINE. [Concomitant]
     Active Substance: DULOXETINE
  5. MEGESTROL ACETATE. [Concomitant]
     Active Substance: MEGESTROL ACETATE
  6. FINASTERIDE. [Concomitant]
     Active Substance: FINASTERIDE
  7. CAPECITABINE. [Suspect]
     Active Substance: CAPECITABINE
     Indication: COLON NEOPLASM
     Route: 048
     Dates: start: 20181102
  8. ENALAPRIL [Concomitant]
     Active Substance: ENALAPRIL
  9. CALCIUM + D3 [Concomitant]
     Active Substance: CALCIUM\CHOLECALCIFEROL
  10. TAMSULOSIN [Concomitant]
     Active Substance: TAMSULOSIN

REACTIONS (1)
  - Asthenia [None]
